FAERS Safety Report 14996673 (Version 1)
Quarter: 2018Q2

REPORT INFORMATION
  Report Type: Spontaneous
  Country: US (occurrence: US)
  Receive Date: 20180611
  Receipt Date: 20180611
  Transmission Date: 20180711
  Serious: No
  Sender: FDA-Public Use
  Company Number: US-UNITED THERAPEUTICS-UNT-2018-003282

PATIENT
  Sex: Female
  Weight: 112.93 kg

DRUGS (6)
  1. TYVASO [Suspect]
     Active Substance: TREPROSTINIL
     Dosage: 18-54 MICROGRAMS, QID
  2. TYVASO [Suspect]
     Active Substance: TREPROSTINIL
     Indication: PULMONARY ARTERIAL HYPERTENSION
     Dosage: 36 ?G, QID
     Dates: start: 20180215
  3. ADCIRCA [Concomitant]
     Active Substance: TADALAFIL
     Indication: PRODUCT USED FOR UNKNOWN INDICATION
     Route: 065
  4. AMLODIPINE [Concomitant]
     Active Substance: AMLODIPINE BESYLATE
     Indication: PRODUCT USED FOR UNKNOWN INDICATION
     Route: 065
  5. TYVASO [Suspect]
     Active Substance: TREPROSTINIL
     Dosage: UNK
  6. TYVASO [Suspect]
     Active Substance: TREPROSTINIL
     Dosage: 6-72 MICROGRAMS, QID

REACTIONS (10)
  - Throat irritation [Unknown]
  - Off label use [Unknown]
  - Dyspnoea [Unknown]
  - Retching [Recovering/Resolving]
  - Oxygen consumption increased [Not Recovered/Not Resolved]
  - Fatigue [Recovering/Resolving]
  - Blood pressure abnormal [Recovering/Resolving]
  - Lower respiratory tract congestion [Recovering/Resolving]
  - Cough [Recovering/Resolving]
  - Throat tightness [Unknown]
